FAERS Safety Report 4404112-8 (Version None)
Quarter: 2004Q3

REPORT INFORMATION
  Report Type: 
  Country: None (occurrence: None)
  Receive Date: 20040719
  Receipt Date: 20040708
  Transmission Date: 20050211
  Serious: Yes (Hospitalization, Other)
  Sender: FDA-Public Use
  Company Number: 2004-06-0421

PATIENT
  Age: 31 Year
  Sex: Female
  Weight: 45 kg

DRUGS (5)
  1. CLARITIN [Suspect]
     Indication: PRURITUS
     Dosage: 10MG QOD-ORAL
     Route: 048
     Dates: start: 20031108
  2. ALMETA (ALCLOMETASONE DIPROPIONATE) OINTMENT [Concomitant]
  3. RETENTION [Concomitant]
  4. PANDEL CREAM [Concomitant]
  5. TACROLIMUS OINTMENT [Concomitant]

REACTIONS (2)
  - ABORTION SPONTANEOUS [None]
  - DRUG EXPOSURE DURING PREGNANCY [None]
